FAERS Safety Report 24386575 (Version 1)
Quarter: 2024Q4

REPORT INFORMATION
  Report Type: Spontaneous
  Country: FR (occurrence: FR)
  Receive Date: 20241002
  Receipt Date: 20241002
  Transmission Date: 20250114
  Serious: Yes (Other)
  Sender: AMGEN
  Company Number: FR-ROCHE-10000080145

PATIENT
  Age: 78 Year
  Sex: Male
  Weight: 112 kg

DRUGS (15)
  1. MVASI [Suspect]
     Active Substance: BEVACIZUMAB-AWWB
     Indication: Hepatocellular carcinoma
     Dosage: 1620 MILLIGRAM, Q3WK
     Route: 040
     Dates: start: 20240321
  2. ATEZOLIZUMAB [Suspect]
     Active Substance: ATEZOLIZUMAB
     Indication: Hepatocellular carcinoma
     Dosage: 1200 MILLIGRAM, Q3WK
     Route: 040
     Dates: start: 20240321
  3. TIRAGOLUMAB [Suspect]
     Active Substance: TIRAGOLUMAB
     Indication: Hepatocellular carcinoma
     Dosage: UNK, Q3WK
     Route: 040
     Dates: start: 20240321
  4. HYALURONATE SODIUM [Concomitant]
     Active Substance: HYALURONATE SODIUM
     Indication: Glaucoma
     Dosage: DRUG DOSE FIRST ADMINISTERED IS 1 OTHER
     Route: 047
  5. NERISONE [Concomitant]
     Active Substance: DIFLUCORTOLONE VALERATE
     Indication: Pruritus
     Dosage: DRUG DOSE FIRST ADMINISTERED IS 1 OTHER
     Route: 062
     Dates: start: 20240626
  6. NERISONE [Concomitant]
     Active Substance: DIFLUCORTOLONE VALERATE
     Indication: Dermatitis psoriasiform
  7. NERISONE [Concomitant]
     Active Substance: DIFLUCORTOLONE VALERATE
     Indication: Stasis dermatitis
  8. HEXETIDINE [Concomitant]
     Active Substance: HEXETIDINE
     Indication: Gingival bleeding
     Dosage: DRUG DOSE FIRST ADMINISTERED IS 1 OTHER
     Route: 048
     Dates: start: 20240405
  9. INDAPAMIDE\PERINDOPRIL [Concomitant]
     Active Substance: INDAPAMIDE\PERINDOPRIL
     Indication: Hypertension
     Dosage: DRUG DOSE FIRST ADMINISTERED IS 1 TABLET
     Route: 048
  10. PERINDOPRIL [Concomitant]
     Active Substance: PERINDOPRIL
     Indication: Hypertension
     Dosage: 10 MILLIGRAM, QD
     Route: 048
     Dates: start: 20240606
  11. ECONAZOLE NITRATE [Concomitant]
     Active Substance: ECONAZOLE NITRATE
     Indication: Intertrigo
     Dosage: DRUG DOSE FIRST ADMINISTERED IS 1 OTHER
     Route: 061
     Dates: start: 20240626
  12. LATANOPROST [Concomitant]
     Active Substance: LATANOPROST
     Indication: Glaucoma
     Dosage: DRUG DOSE FIRST ADMINISTERED IS 1 OTHER
     Route: 047
  13. TRELEGY ELLIPTA [Concomitant]
     Active Substance: FLUTICASONE FUROATE\UMECLIDINIUM BROMIDE\VILANTEROL TRIFENATATE
     Indication: Chronic obstructive pulmonary disease
     Dosage: DRUG DOSE FIRST ADMINISTERED IS 1 INHALATION
     Route: 055
  14. BRINZOLAMIDE [Concomitant]
     Active Substance: BRINZOLAMIDE
     Indication: Glaucoma
     Dosage: DRUG DOSE FIRST ADMINISTERED IS 1 OTHER
     Route: 047
  15. FUROSEMIDE [Concomitant]
     Active Substance: FUROSEMIDE
     Indication: Oedema peripheral
     Dosage: 40 MILLIGRAM, QD
     Route: 048
     Dates: start: 20240726

REACTIONS (2)
  - Adrenal insufficiency [Not Recovered/Not Resolved]
  - Off label use [Unknown]

NARRATIVE: CASE EVENT DATE: 20240810
